FAERS Safety Report 7002145-9 (Version None)
Quarter: 2010Q3

REPORT INFORMATION
  Report Type: 
  Country: None (occurrence: None)
  Receive Date: 20100920
  Receipt Date: 20100603
  Transmission Date: 20110219
  Serious: Yes (Hospitalization, Other)
  Sender: FDA-Public Use
  Company Number: US-ASTRAZENECA-2010SE20869

PATIENT
  Age: 13882 Day
  Sex: Male
  Weight: 86.2 kg

DRUGS (5)
  1. SEROQUEL XR [Suspect]
     Indication: DEPRESSION
     Route: 048
     Dates: start: 20090302, end: 20090612
  2. SEROQUEL XR [Suspect]
     Indication: PAIN
     Route: 048
     Dates: start: 20090302, end: 20090612
  3. SEROQUEL XR [Suspect]
     Route: 048
     Dates: end: 20100421
  4. SEROQUEL XR [Suspect]
     Route: 048
     Dates: end: 20100421
  5. KLONOPIN [Concomitant]
     Indication: ANXIETY
     Route: 048
     Dates: start: 20090908

REACTIONS (2)
  - GRAND MAL CONVULSION [None]
  - RHABDOMYOLYSIS [None]
